FAERS Safety Report 4533521-1 (Version None)
Quarter: 2004Q4

REPORT INFORMATION
  Report Type: 
  Country: None (occurrence: None)
  Receive Date: 20041221
  Receipt Date: 20041112
  Transmission Date: 20050328
  Serious: Yes (Other)
  Sender: FDA-Public Use
  Company Number: BR-MERCK-0411BRA00179

PATIENT
  Age: 23 Year
  Sex: Male

DRUGS (1)
  1. VIOXX [Suspect]
     Indication: PAIN
     Route: 048
     Dates: start: 20040822, end: 20040828

REACTIONS (3)
  - NAUSEA [None]
  - PARALYSIS [None]
  - RASH [None]
